FAERS Safety Report 8034560-9 (Version None)
Quarter: 2012Q1

REPORT INFORMATION
  Report Type: 
  Country: None (occurrence: None)
  Receive Date: 20120110
  Receipt Date: 20120103
  Transmission Date: 20120608
  Serious: Yes (Other)
  Sender: FDA-Public Use
  Company Number: US-GENZYME-CERZ-1002355

PATIENT

DRUGS (2)
  1. CEREZYME [Suspect]
     Indication: GAUCHER'S DISEASE
     Dosage: 2800 UNK, Q2W
     Route: 042
  2. CEREZYME [Suspect]
     Dosage: 5200 UNK, Q2W
     Route: 042
     Dates: start: 19971101

REACTIONS (3)
  - HIP FRACTURE [None]
  - FALL [None]
  - UPPER LIMB FRACTURE [None]
